FAERS Safety Report 10052148 (Version 1)
Quarter: 2014Q2

REPORT INFORMATION
  Report Type: Spontaneous
  Country: US (occurrence: None)
  Receive Date: 20140401
  Receipt Date: 20140401
  Transmission Date: 20141212
  Serious: Yes (Hospitalization, Other)
  Sender: FDA-Public Use
  Company Number: None

PATIENT
  Age: 16 Year
  Sex: Female
  Weight: 68.04 kg

DRUGS (1)
  1. NUVARING MERCK [Suspect]
     Indication: CONTRACEPTION
     Dosage: ONE RING MONTHLY
     Dates: start: 20140304, end: 20140318

REACTIONS (4)
  - Thinking abnormal [None]
  - Affective disorder [None]
  - Vomiting [None]
  - Somnolence [None]
